FAERS Safety Report 5604449-0 (Version None)
Quarter: 2008Q1

REPORT INFORMATION
  Report Type: 
  Country: None (occurrence: None)
  Receive Date: 20080123
  Receipt Date: 20080123
  Transmission Date: 20080703
  Serious: No
  Sender: FDA-Public Use
  Company Number: None

PATIENT
  Age: 35 Year
  Sex: Male
  Weight: 89 kg

DRUGS (1)
  1. CHANTIX [Suspect]
     Indication: SMOKING CESSATION THERAPY
     Dosage: STARTER PACK PO
     Route: 048
     Dates: start: 20071102, end: 20071116

REACTIONS (7)
  - ABNORMAL DREAMS [None]
  - AGGRESSION [None]
  - CONDITION AGGRAVATED [None]
  - DEPRESSION [None]
  - MOOD ALTERED [None]
  - NAUSEA [None]
  - VERBAL ABUSE [None]
